FAERS Safety Report 17526881 (Version 1)
Quarter: 2020Q1

REPORT INFORMATION
  Report Type: Spontaneous
  Country: US (occurrence: US)
  Receive Date: 20200311
  Receipt Date: 20200311
  Transmission Date: 20200409
  Serious: Yes (Hospitalization, Other)
  Sender: FDA-Public Use
  Company Number: US-MALLINCKRODT-T202000997

PATIENT
  Age: 1 Year
  Sex: Male
  Weight: 11 kg

DRUGS (3)
  1. H.P. ACTHAR [Suspect]
     Active Substance: CORTICOTROPIN
     Indication: INFANTILE SPASMS
     Dosage: UNK
     Route: 030
     Dates: end: 20200201
  2. H.P. ACTHAR [Suspect]
     Active Substance: CORTICOTROPIN
     Dosage: 0.48 ML (38.4 UNITS), TWICE DAILY FOR DAY 1-14, AS DIRECTED
     Route: 030
     Dates: start: 20200214, end: 20200222
  3. PREDNISONE. [Suspect]
     Active Substance: PREDNISONE
     Indication: SEIZURE
     Dosage: 5 MILLIGRAM, TID
     Route: 065

REACTIONS (7)
  - Chromaturia [Unknown]
  - Blood glucose increased [Recovered/Resolved]
  - Bradycardia [Recovered/Resolved]
  - Seizure [Unknown]
  - Lip swelling [Unknown]
  - Blood pressure increased [Recovered/Resolved]
  - Swollen tongue [Unknown]

NARRATIVE: CASE EVENT DATE: 202002
